FAERS Safety Report 13517953 (Version 2)
Quarter: 2017Q3

REPORT INFORMATION
  Report Type: Spontaneous
  Country: CO (occurrence: CO)
  Receive Date: 20170505
  Receipt Date: 20170920
  Transmission Date: 20171127
  Serious: Yes (Other)
  Sender: FDA-Public Use
  Company Number: CO-GLAXOSMITHKLINE-CO2017GSK062453

PATIENT
  Age: 25 Year
  Sex: Female
  Weight: 157 kg

DRUGS (4)
  1. SERETIDE [Suspect]
     Active Substance: FLUTICASONE PROPIONATE\SALMETEROL XINAFOATE
     Indication: ASTHMA
     Dosage: 1 PUFF(S), BID
     Route: 055
     Dates: start: 201701
  2. VENTILAN [Suspect]
     Active Substance: ALBUTEROL SULFATE
     Indication: ASTHMA
     Dosage: UNK, Z
     Route: 055
     Dates: start: 201701
  3. VENTILAN [Suspect]
     Active Substance: ALBUTEROL SULFATE
     Indication: PROPHYLAXIS
  4. AVAMYS [Suspect]
     Active Substance: FLUTICASONE FUROATE
     Indication: NASAL DECONGESTION THERAPY
     Dosage: UNK
     Route: 045

REACTIONS (8)
  - Nasal congestion [Recovered/Resolved]
  - Heart rate increased [Unknown]
  - Wheezing [Recovered/Resolved]
  - Mouth breathing [Unknown]
  - Cough [Recovered/Resolved]
  - Asthmatic crisis [Recovered/Resolved]
  - Headache [Recovered/Resolved]
  - Chest pain [Recovered/Resolved]

NARRATIVE: CASE EVENT DATE: 20170426
